FAERS Safety Report 4964750-0 (Version None)
Quarter: 2006Q2

REPORT INFORMATION
  Report Type: 
  Country: None (occurrence: None)
  Receive Date: 20060406
  Receipt Date: 20060202
  Transmission Date: 20061013
  Serious: Yes (Hospitalization, Other)
  Sender: FDA-Public Use
  Company Number: US-MERCK-0602USA01568

PATIENT
  Age: 55 Year
  Sex: Female
  Weight: 75 kg

DRUGS (2)
  1. VIOXX [Suspect]
     Route: 048
     Dates: start: 20000101, end: 20040901
  2. LORCET-HD [Concomitant]
     Route: 065

REACTIONS (4)
  - JOINT INJURY [None]
  - LIMB INJURY [None]
  - SILENT MYOCARDIAL INFARCTION [None]
  - SKIN ULCER [None]
